FAERS Safety Report 18915140 (Version 1)
Quarter: 2021Q1

REPORT INFORMATION
  Report Type: Spontaneous
  Country: GR (occurrence: GR)
  Receive Date: 20210219
  Receipt Date: 20210219
  Transmission Date: 20210420
  Serious: Yes (Other)
  Sender: FDA-Public Use
  Company Number: GR-PFIZER INC-2021130640

PATIENT
  Age: 82 Year

DRUGS (2)
  1. TIGECYCLINE. [Suspect]
     Active Substance: TIGECYCLINE
     Indication: MEDICAL DEVICE SITE INFECTION
     Route: 042
  2. TIGECYCLINE. [Suspect]
     Active Substance: TIGECYCLINE
     Indication: ESCHERICHIA INFECTION

REACTIONS (2)
  - Haemarthrosis [Recovered/Resolved]
  - Hypofibrinogenaemia [Recovered/Resolved]
